FAERS Safety Report 11802964 (Version 2)
Quarter: 2015Q4

REPORT INFORMATION
  Report Type: Spontaneous
  Country: JP (occurrence: JP)
  Receive Date: 20151204
  Receipt Date: 20151210
  Transmission Date: 20160305
  Serious: Yes (Hospitalization)
  Sender: FDA-Public Use
  Company Number: JP-WATSON-2015-26578

PATIENT
  Age: 73 Year
  Sex: Male
  Weight: 63 kg

DRUGS (9)
  1. TACROLIMUS (UNKNOWN) [Interacting]
     Active Substance: TACROLIMUS
     Indication: INTERSTITIAL LUNG DISEASE
     Dosage: MAINTENANCE DOSE 4 MG/DAY
     Route: 065
  2. VORICONAZOLE (UNKNOWN) [Interacting]
     Active Substance: VORICONAZOLE
     Dosage: 400 MG/DAY MAINTENANCE DOSE
     Route: 048
  3. PREDNISOLONE (UNKNOWN) [Suspect]
     Active Substance: PREDNISOLONE
     Indication: INTERSTITIAL LUNG DISEASE
     Dosage: MAINTENANCE DOSE 12.5 MG/DAY
     Route: 065
  4. TACROLIMUS (UNKNOWN) [Interacting]
     Active Substance: TACROLIMUS
     Dosage: 0.6 MG/DAY
     Route: 065
  5. TACROLIMUS (UNKNOWN) [Interacting]
     Active Substance: TACROLIMUS
     Dosage: MAINTENANCE DOSE 2 MG/DAY
     Route: 065
  6. VORICONAZOLE (UNKNOWN) [Interacting]
     Active Substance: VORICONAZOLE
     Indication: BRONCHOPULMONARY ASPERGILLOSIS
     Dosage: 600 MG/DAY OF ORAL
     Route: 048
  7. VORICONAZOLE (UNKNOWN) [Interacting]
     Active Substance: VORICONAZOLE
     Dosage: 200 MG/DAY
     Route: 048
  8. TACROLIMUS (UNKNOWN) [Interacting]
     Active Substance: TACROLIMUS
     Dosage: 1 MG/DAY
     Route: 065
  9. METHYLPREDNISOLONE (UNKNOWN) [Suspect]
     Active Substance: METHYLPREDNISOLONE
     Indication: INTERSTITIAL LUNG DISEASE
     Dosage: PULSE THERAPY
     Route: 065

REACTIONS (3)
  - Drug interaction [Unknown]
  - Hepatic enzyme increased [Recovered/Resolved]
  - Bronchopulmonary aspergillosis [Recovered/Resolved]
